FAERS Safety Report 19190472 (Version 1)
Quarter: 2021Q2

REPORT INFORMATION
  Report Type: Spontaneous
  Country: CA (occurrence: CA)
  Receive Date: 20210428
  Receipt Date: 20210428
  Transmission Date: 20210717
  Serious: Yes (Other)
  Sender: FDA-Public Use
  Company Number: CA-ROCHE-2814559

PATIENT
  Age: 50 Year
  Sex: Female

DRUGS (2)
  1. OCRELIZUMAB. [Suspect]
     Active Substance: OCRELIZUMAB
     Indication: PRODUCT USED FOR UNKNOWN INDICATION
     Route: 065
  2. AIMOVIG [Suspect]
     Active Substance: ERENUMAB-AOOE
     Indication: MIGRAINE
     Route: 065

REACTIONS (7)
  - Migraine [Unknown]
  - Multiple sclerosis [Unknown]
  - Alopecia [Unknown]
  - Irritability [Unknown]
  - Illness [Unknown]
  - Concussion [Unknown]
  - Hypersensitivity [Unknown]
